FAERS Safety Report 16145782 (Version 2)
Quarter: 2019Q2

REPORT INFORMATION
  Report Type: Spontaneous
  Country: US (occurrence: US)
  Receive Date: 20190402
  Receipt Date: 20190405
  Transmission Date: 20190711
  Serious: Yes (Life-Threatening)
  Sender: FDA-Public Use
  Company Number: US-ROCHE-2291851

PATIENT
  Age: 15 Year
  Sex: Female
  Weight: 81.72 kg

DRUGS (6)
  1. RITUXAN [Suspect]
     Active Substance: RITUXIMAB
     Route: 042
     Dates: start: 201901
  2. XOLAIR [Suspect]
     Active Substance: OMALIZUMAB
     Route: 058
     Dates: start: 2008
  3. RITUXAN [Suspect]
     Active Substance: RITUXIMAB
     Indication: ANAPHYLACTIC REACTION
     Dosage: HAS HAD 2 DOSES IN LAST 2 MONTHS IN 2019 ;ONGOING: NO
     Route: 042
  4. RANITIDINE. [Concomitant]
     Active Substance: RANITIDINE
     Dosage: YES
     Route: 065
  5. XOLAIR [Suspect]
     Active Substance: OMALIZUMAB
     Indication: ANAPHYLACTIC REACTION
     Dosage: NO
     Route: 058
     Dates: start: 20180621
  6. XOLAIR [Suspect]
     Active Substance: OMALIZUMAB
     Dosage: YES
     Route: 058
     Dates: start: 20180907

REACTIONS (2)
  - Anaphylactic reaction [Recovered/Resolved]
  - Blood immunoglobulin E increased [Unknown]

NARRATIVE: CASE EVENT DATE: 201705
